FAERS Safety Report 6558186-9 (Version None)
Quarter: 2010Q1

REPORT INFORMATION
  Report Type: 
  Country: None (occurrence: None)
  Receive Date: 20100129
  Receipt Date: 20100120
  Transmission Date: 20100710
  Serious: Yes (Hospitalization)
  Sender: FDA-Public Use
  Company Number: GB-AMGEN-UK385466

PATIENT
  Sex: Female

DRUGS (12)
  1. PANITUMUMAB [Suspect]
     Indication: COLORECTAL CANCER
     Dates: start: 20091120
  2. TINZAPARIN SODIUM [Concomitant]
     Route: 058
  3. LANSOPRAZOLE [Concomitant]
  4. ONDANSETRON [Concomitant]
  5. BETAMETHASONE [Concomitant]
  6. LACTULOSE [Concomitant]
  7. HYPROMELLOSE [Concomitant]
  8. EPIRUBICIN [Concomitant]
     Dates: start: 20091120
  9. OXALIPLATIN [Concomitant]
     Dates: start: 20091120
  10. CAPECITABINE [Concomitant]
     Dates: start: 20091120
  11. MOVICOL [Concomitant]
  12. PYRIDOXINE [Concomitant]

REACTIONS (4)
  - CONSTIPATION [None]
  - DYSPHAGIA [None]
  - GENERAL PHYSICAL HEALTH DETERIORATION [None]
  - VOMITING [None]
